FAERS Safety Report 10791387 (Version 1)
Quarter: 2015Q1

REPORT INFORMATION
  Report Type: Spontaneous
  Country: US (occurrence: US)
  Receive Date: 20150213
  Receipt Date: 20150213
  Transmission Date: 20150721
  Serious: Yes (Death)
  Sender: FDA-Public Use
  Company Number: US-CIPLA LTD.-2015US01047

PATIENT

DRUGS (3)
  1. LAMOTRIGINE. [Suspect]
     Active Substance: LAMOTRIGINE
     Route: 048
  2. COCAINE [Suspect]
     Active Substance: COCAINE
  3. BUPROPION (LONG-ACTING) [Suspect]
     Active Substance: BUPROPION

REACTIONS (3)
  - Exposure via ingestion [None]
  - Completed suicide [Fatal]
  - Completed suicide [None]
